FAERS Safety Report 20844916 (Version 1)
Quarter: 2022Q2

REPORT INFORMATION
  Report Type: Report from Study
  Country: US (occurrence: US)
  Receive Date: 20220518
  Receipt Date: 20220518
  Transmission Date: 20220721
  Serious: No
  Sender: FDA-Public Use
  Company Number: US-Ipsen Biopharmaceuticals, Inc.-2022-13285

PATIENT
  Sex: Female

DRUGS (1)
  1. SOMATULINE DEPOT [Suspect]
     Active Substance: LANREOTIDE ACETATE
     Indication: Carcinoid tumour
     Dosage: 120 MG, EVERY 28 DAYS
     Route: 058
     Dates: start: 201908

REACTIONS (3)
  - Paraesthesia [Recovering/Resolving]
  - Peripheral coldness [Recovering/Resolving]
  - Insomnia [Recovering/Resolving]
